FAERS Safety Report 14661799 (Version 1)
Quarter: 2018Q1

REPORT INFORMATION
  Report Type: Spontaneous
  Country: US (occurrence: US)
  Receive Date: 20180318
  Receipt Date: 20180318
  Transmission Date: 20180509
  Serious: Yes (Hospitalization)
  Sender: FDA-Public Use
  Company Number: None

PATIENT
  Age: 16 Year
  Sex: Male
  Weight: 92.7 kg

DRUGS (9)
  1. VINCRISTINE SULFATE. [Suspect]
     Active Substance: VINCRISTINE SULFATE
     Dates: end: 20180124
  2. VORICONAZOLE VFEND [Concomitant]
  3. METHOTREXATE. [Suspect]
     Active Substance: METHOTREXATE
     Dates: end: 20180117
  4. ONCASPAR [Suspect]
     Active Substance: PEGASPARGASE
     Dates: end: 20180124
  5. CYCLOPHOSPHAMIDE. [Suspect]
     Active Substance: CYCLOPHOSPHAMIDE
     Dates: end: 20180109
  6. CYTARABINE. [Suspect]
     Active Substance: CYTARABINE
     Dates: end: 20180109
  7. THIOGUANINE (6-TG) [Suspect]
     Active Substance: THIOGUANINE ANHYDROUS
     Dates: end: 20180122
  8. DOXORUBICIN HYDROCHLORIDE. [Suspect]
     Active Substance: DOXORUBICIN HYDROCHLORIDE
     Dates: end: 20171226
  9. FUROSEMIDE LASIX [Concomitant]

REACTIONS (9)
  - Viral infection [None]
  - Bacterial infection [None]
  - Sepsis [None]
  - Dependence [None]
  - Cardio-respiratory arrest [None]
  - Torsade de pointes [None]
  - Fungal infection [None]
  - Ventricular tachycardia [None]
  - Pulseless electrical activity [None]

NARRATIVE: CASE EVENT DATE: 20180209
